FAERS Safety Report 20582094 (Version 1)
Quarter: 2022Q1

REPORT INFORMATION
  Report Type: Spontaneous
  Country: ES (occurrence: ES)
  Receive Date: 20220311
  Receipt Date: 20220311
  Transmission Date: 20220423
  Serious: Yes (Other)
  Sender: FDA-Public Use
  Company Number: ES-SUN PHARMACEUTICAL INDUSTRIES LTD-2019R1-232454

PATIENT
  Age: 17 Year
  Sex: Female

DRUGS (2)
  1. CLOZAPINE [Suspect]
     Active Substance: CLOZAPINE
     Indication: Bipolar disorder
     Dosage: 25 MILLIGRAM, DAILY
     Route: 065
  2. CLOZAPINE [Suspect]
     Active Substance: CLOZAPINE
     Indication: Psychotic symptom
     Dosage: 150 MILLIGRAM, DAILY
     Route: 065

REACTIONS (3)
  - Eosinophilia [Recovering/Resolving]
  - C-reactive protein increased [Unknown]
  - Pyrexia [Recovered/Resolved]
